FAERS Safety Report 6387115-6 (Version None)
Quarter: 2009Q4

REPORT INFORMATION
  Report Type: 
  Country: None (occurrence: None)
  Receive Date: 20091002
  Receipt Date: 20090924
  Transmission Date: 20100525
  Serious: Yes (Hospitalization)
  Sender: FDA-Public Use
  Company Number: FR-SANOFI-SYNTHELABO-A01200909971

PATIENT
  Age: 60 Year
  Sex: Male

DRUGS (1)
  1. PLAVIX [Suspect]
     Indication: ANEURYSM REPAIR
     Dosage: UNK
     Route: 048

REACTIONS (1)
  - LUNG DISORDER [None]
